FAERS Safety Report 6204238-2 (Version None)
Quarter: 2009Q2

REPORT INFORMATION
  Report Type: 
  Country: None (occurrence: None)
  Receive Date: 20090527
  Receipt Date: 20090514
  Transmission Date: 20091009
  Serious: Yes (Disabling)
  Sender: FDA-Public Use
  Company Number: FR-ELI_LILLY_AND_COMPANY-FR200905003804

PATIENT
  Age: 74 Year
  Sex: Male

DRUGS (5)
  1. ALIMTA [Suspect]
     Indication: LUNG ADENOCARCINOMA
     Dosage: 500 MG/M2, EVERY 3 WEEKS
     Route: 042
     Dates: start: 20090401
  2. CISPLATIN [Concomitant]
     Indication: LUNG ADENOCARCINOMA
     Dosage: UNK, UNKNOWN
     Route: 065
     Dates: start: 20090401
  3. FOLIC ACID [Concomitant]
     Indication: VITAMIN SUPPLEMENTATION
     Dosage: UNK, UNKNOWN
     Route: 065
     Dates: start: 20090401
  4. VITAMIN B-12 [Concomitant]
     Indication: VITAMIN SUPPLEMENTATION
     Dosage: UNK, UNKNOWN
     Route: 065
     Dates: start: 20090401
  5. CORTICOSTEROID NOS [Concomitant]
     Dosage: UNK, UNKNOWN
     Route: 065
     Dates: start: 20090401

REACTIONS (3)
  - INSOMNIA [None]
  - NEUROPATHY PERIPHERAL [None]
  - RESTLESS LEGS SYNDROME [None]
